FAERS Safety Report 8386808-9 (Version None)
Quarter: 2012Q2

REPORT INFORMATION
  Report Type: 
  Country: None (occurrence: None)
  Receive Date: 20120525
  Receipt Date: 20120515
  Transmission Date: 20120825
  Serious: Yes (Other)
  Sender: FDA-Public Use
  Company Number: CA-BRISTOL-MYERS SQUIBB COMPANY-16599920

PATIENT
  Age: 74 Year
  Sex: Male

DRUGS (10)
  1. CLONIDINE [Concomitant]
     Indication: HYPERTENSION
     Route: 048
     Dates: start: 20090101
  2. ALFUZOSIN HCL [Suspect]
     Indication: URINARY TRACT DISORDER
     Dosage: AT BEDTIME
     Route: 048
     Dates: start: 20070101, end: 20120515
  3. TESTIM [Suspect]
     Route: 061
     Dates: start: 20110701, end: 20111212
  4. LANTUS [Suspect]
     Indication: DIABETES MELLITUS
     Dosage: 36IU IN MORNING, 38IU AT BEDTIME
     Route: 058
     Dates: start: 20070101
  5. NOVORAPID [Concomitant]
     Indication: DIABETES MELLITUS
     Dosage: 1 DF= 12IU BREAKFAST, 6IU LUNCH, 10IU SUPPER
     Route: 058
     Dates: start: 20070101
  6. ALTACE [Suspect]
     Indication: HYPERTENSION
     Route: 048
     Dates: start: 20090101
  7. AVODART [Concomitant]
     Indication: URINARY TRACT DISORDER
     Dosage: 1 DF= 1 TAB AT BEDTIME
     Route: 048
     Dates: start: 20080101, end: 20120515
  8. ATENOLOL [Concomitant]
     Indication: HYPERTENSION
     Route: 048
     Dates: start: 20090101
  9. AVALIDE [Suspect]
     Indication: HYPERTENSION
     Dosage: 1 DF= 300/12.5MG
     Route: 048
     Dates: start: 20090101
  10. AMLODIPINE BESYLATE [Concomitant]
     Indication: HYPERTENSION
     Route: 048
     Dates: start: 20090101

REACTIONS (1)
  - PROSTATE CANCER [None]
